FAERS Safety Report 5167843-0 (Version None)
Quarter: 2006Q4

REPORT INFORMATION
  Report Type: 
  Country: None (occurrence: None)
  Receive Date: 20061208
  Receipt Date: 20060614
  Transmission Date: 20070319
  Serious: Yes (Hospitalization, Other)
  Sender: FDA-Public Use
  Company Number: PHFR2006GB01983

PATIENT
  Age: 39 Year
  Sex: Male

DRUGS (5)
  1. CLOZARIL [Suspect]
     Indication: SCHIZOPHRENIA
     Dosage: 225MG/DAY
     Route: 048
     Dates: start: 20060524, end: 20060615
  2. CHLORPROMAZINE [Concomitant]
     Dosage: 100MG/DAY
     Route: 048
  3. VALPROATE SODIUM [Concomitant]
     Dosage: 1000MG/DAY
     Route: 048
  4. LISINOPRIL [Concomitant]
     Dosage: 20MG/DAY
     Route: 048
  5. PROCYCLIDINE HYDROCHLORIDE 2MG TAB [Concomitant]
     Indication: EXTRAPYRAMIDAL DISORDER
     Dosage: 5MG/DAY
     Route: 048

REACTIONS (9)
  - CARDIOMYOPATHY [None]
  - DIZZINESS [None]
  - DYSPNOEA [None]
  - HAEMOGLOBIN DECREASED [None]
  - HYPOTENSION [None]
  - MALAISE [None]
  - MYOPATHY [None]
  - PALLOR [None]
  - TACHYCARDIA [None]
